FAERS Safety Report 7258689-8 (Version None)
Quarter: 2011Q1

REPORT INFORMATION
  Report Type: 
  Country: None (occurrence: None)
  Receive Date: 20110129
  Receipt Date: 20100503
  Transmission Date: 20110831
  Serious: No
  Sender: FDA-Public Use
  Company Number: US-ABBOTT-10P-163-0642954-00

PATIENT
  Sex: Female
  Weight: 72.64 kg

DRUGS (3)
  1. VERAPAMIL [Concomitant]
     Indication: MIGRAINE
  2. HUMIRA [Suspect]
     Indication: RHEUMATOID ARTHRITIS
     Route: 058
     Dates: start: 20100301
  3. VERAPAMIL [Concomitant]
     Indication: BLOOD PRESSURE
     Route: 048

REACTIONS (4)
  - HYPERHIDROSIS [None]
  - THROAT TIGHTNESS [None]
  - CHEST PAIN [None]
  - RESPIRATORY TRACT CONGESTION [None]
